FAERS Safety Report 4307794-4 (Version None)
Quarter: 2004Q1

REPORT INFORMATION
  Report Type: 
  Country: None (occurrence: None)
  Receive Date: 20040225
  Receipt Date: 20030610
  Transmission Date: 20041129
  Serious: Yes (Hospitalization)
  Sender: FDA-Public Use
  Company Number: WAES 0306USA01249

PATIENT
  Age: 56 Year
  Sex: Female

DRUGS (12)
  1. ZOCOR [Suspect]
     Dosage: PO
     Route: 048
  2. TAB REMIFEMIN 20 MG [Suspect]
     Indication: MENOPAUSAL SYMPTOMS
     Dosage: 20 MG/BID/PO
     Route: 048
     Dates: start: 20021001, end: 20030205
  3. MACROBID [Suspect]
     Indication: DYSURIA
  4. MACROBID [Suspect]
     Indication: POLLAKIURIA
  5. EFFEXOR [Suspect]
  6. CALTRATE [Concomitant]
  7. ESTER-C [Concomitant]
  8. METAB-O-LITE [Concomitant]
  9. ASCORBIC ACID (+) BIOFLAVONOIDS [Concomitant]
  10. CIMICIFUGA [Concomitant]
  11. ECHINACEA [Concomitant]
  12. VITAMINS (UNSPECIFIED) [Concomitant]

REACTIONS (5)
  - BACK PAIN [None]
  - DIABETES MELLITUS NON-INSULIN-DEPENDENT [None]
  - HEPATITIS [None]
  - URINARY TRACT INFECTION [None]
  - VAGINITIS ATROPHIC [None]
